FAERS Safety Report 4342908-1 (Version None)
Quarter: 2004Q2

REPORT INFORMATION
  Report Type: 
  Country: None (occurrence: None)
  Receive Date: 20040416
  Receipt Date: 20040407
  Transmission Date: 20050107
  Serious: Yes (Life-Threatening)
  Sender: FDA-Public Use
  Company Number: 2004208671FR

PATIENT
  Age: 55 Year
  Sex: Male

DRUGS (6)
  1. ADRIBLASTINE (DOXORUBICIN HYDROCHLORIDE) POWDER, STERILE [Suspect]
     Indication: NON-HODGKIN'S LYMPHOMA
     Dosage: 45 MG, CYCLIC, DAY 1, IV
     Route: 042
     Dates: start: 20030401, end: 20030527
  2. PREDNISONE TAB [Suspect]
     Indication: NON-HODGKIN'S LYMPHOMA
     Dosage: CYCLIC, DAYS 1-5, ORAL
     Route: 048
     Dates: start: 20030401, end: 20030527
  3. ENDOXAN (CYCLOPOHOSPHAMIDE) [Suspect]
     Indication: NON-HODGKIN'S LYMPHOMA
     Dosage: 1110 MG, CYCLIC, DAY 1, IV
     Route: 042
     Dates: start: 20030401, end: 20030527
  4. ETOPOSIDE [Suspect]
     Indication: NON-HODGKIN'S LYMPHOMA
     Dosage: 200 MG, CYCLIC, DAY 1, IV
     Route: 042
     Dates: start: 20030401, end: 20030527
  5. MABTHERA (RITUXIMAB) [Suspect]
     Indication: NON-HODGKIN'S LYMPHOMA
     Dosage: 500 MG, CYCLIC, DAY 1, IV
     Route: 042
     Dates: start: 20030401, end: 20030527
  6. PEGINTRON (PEGINTERFERON ALPHA-2B) [Suspect]
     Indication: NON-HODGKIN'S LYMPHOMA
     Dosage: CYCLIC, DAY 1 AND 8, SUBCUTANEOUS
     Route: 058
     Dates: start: 20030401

REACTIONS (1)
  - GLIOBLASTOMA MULTIFORME [None]
